FAERS Safety Report 21448409 (Version 3)
Quarter: 2023Q1

REPORT INFORMATION
  Report Type: Spontaneous
  Country: JP (occurrence: JP)
  Receive Date: 20221013
  Receipt Date: 20230325
  Transmission Date: 20230417
  Serious: Yes (Other)
  Sender: FDA-Public Use
  Company Number: JP-ABBVIE-21K-087-3955143-00

PATIENT
  Age: 57 Year
  Sex: Male

DRUGS (2)
  1. CARBIDOPA\LEVODOPA [Suspect]
     Active Substance: CARBIDOPA\LEVODOPA
     Indication: Parkinson^s disease
     Route: 050
  2. CARBIDOPA\LEVODOPA [Suspect]
     Active Substance: CARBIDOPA\LEVODOPA
     Route: 050
     Dates: start: 20210520

REACTIONS (18)
  - Loss of consciousness [Unknown]
  - Mobility decreased [Unknown]
  - Product prescribing error [Unknown]
  - Muscular weakness [Not Recovered/Not Resolved]
  - Discomfort [Unknown]
  - Malaise [Unknown]
  - On and off phenomenon [Unknown]
  - Dizziness [Unknown]
  - Parkinson^s disease [Unknown]
  - Malaise [Not Recovered/Not Resolved]
  - Weight increased [Unknown]
  - Mobility decreased [Unknown]
  - Product use issue [Unknown]
  - Dysuria [Unknown]
  - Sense of oppression [Unknown]
  - Fatigue [Unknown]
  - Device issue [Unknown]
  - Stoma site extravasation [Unknown]

NARRATIVE: CASE EVENT DATE: 20211201
